FAERS Safety Report 8521840-3 (Version None)
Quarter: 2012Q3

REPORT INFORMATION
  Report Type: 
  Country: None (occurrence: None)
  Receive Date: 20120719
  Receipt Date: 20120423
  Transmission Date: 20120928
  Serious: Yes (Other)
  Sender: FDA-Public Use
  Company Number: US-BRISTOL-MYERS SQUIBB COMPANY-16542847

PATIENT
  Age: 65 Year
  Sex: Male
  Weight: 79 kg

DRUGS (1)
  1. YERVOY [Suspect]
     Indication: METASTATIC MALIGNANT MELANOMA
     Dosage: NO OF DOSES 3; STARTED THREE MONTHS AGO.

REACTIONS (6)
  - NEOPLASM MALIGNANT [None]
  - VISION BLURRED [None]
  - HEADACHE [None]
  - MUSCULAR WEAKNESS [None]
  - TINNITUS [None]
  - EYE PAIN [None]
